FAERS Safety Report 6083656-X (Version None)
Quarter: 2009Q1

REPORT INFORMATION
  Report Type: 
  Country: None (occurrence: None)
  Receive Date: 20090204
  Receipt Date: 20080513
  Transmission Date: 20090719
  Serious: Yes (Hospitalization)
  Sender: FDA-Public Use
  Company Number: 266495

PATIENT
  Age: 44 Year
  Sex: Male

DRUGS (2)
  1. NOVOLOG [Suspect]
     Indication: TYPE 1 DIABETES MELLITUS
     Dosage: 14 LU, QD, SUBCUTAN.-PUMP
     Route: 058
     Dates: start: 20070810
  2. SUDAFED 12 HOUR [Concomitant]

REACTIONS (1)
  - DIABETIC KETOACIDOSIS [None]
